FAERS Safety Report 21970408 (Version 1)
Quarter: 2023Q1

REPORT INFORMATION
  Report Type: Spontaneous
  Country: US (occurrence: US)
  Receive Date: 20230209
  Receipt Date: 20230209
  Transmission Date: 20230418
  Serious: Yes (Other)
  Sender: FDA-Public Use
  Company Number: US-MICRO LABS LIMITED-ML2023-00574

PATIENT
  Age: 78 Year
  Sex: Male

DRUGS (2)
  1. TRAVOPROST [Suspect]
     Active Substance: TRAVOPROST
     Indication: Glaucoma
  2. TRAVOPROST [Suspect]
     Active Substance: TRAVOPROST
     Dosage: DOSE, FREQUENCY QHS OU (EVERY NIGHT AT BEDTIME IN BOTH THE EYES)
     Dates: start: 20221221

REACTIONS (6)
  - Severe cutaneous adverse reaction [Recovering/Resolving]
  - Erythema [Recovering/Resolving]
  - Skin exfoliation [Recovering/Resolving]
  - Dermatitis allergic [Recovering/Resolving]
  - Conjunctivitis allergic [Recovering/Resolving]
  - Oedema [Recovering/Resolving]

NARRATIVE: CASE EVENT DATE: 20221221
